FAERS Safety Report 25552548 (Version 2)
Quarter: 2025Q3

REPORT INFORMATION
  Report Type: Spontaneous
  Country: US (occurrence: US)
  Receive Date: 20250715
  Receipt Date: 20250723
  Transmission Date: 20251021
  Serious: Yes (Other)
  Sender: AUROBINDO
  Company Number: US-AUROBINDO-AUR-APL-2025-034620

PATIENT
  Age: 35 Year
  Sex: Male

DRUGS (1)
  1. NICOTINE POLACRILEX [Suspect]
     Active Substance: NICOTINE
     Indication: Investigation
     Route: 065
     Dates: start: 20250610

REACTIONS (4)
  - Burn oral cavity [Unknown]
  - Oral discomfort [Unknown]
  - Product taste abnormal [Unknown]
  - Product after taste [Unknown]
